FAERS Safety Report 8100565-2 (Version None)
Quarter: 2012Q1

REPORT INFORMATION
  Report Type: 
  Country: None (occurrence: None)
  Receive Date: 20120129
  Receipt Date: 20111110
  Transmission Date: 20120608
  Serious: No
  Sender: FDA-Public Use
  Company Number: US-ABBOTT-11P-163-0873358-00

PATIENT
  Age: 53 Year
  Sex: Female

DRUGS (9)
  1. CRESTOR [Concomitant]
     Indication: BLOOD CHOLESTEROL
     Dosage: DAILY
  2. HUMIRA [Suspect]
     Indication: FIBROMYALGIA
  3. VITAMIN D [Concomitant]
     Indication: PRODUCT USED FOR UNKNOWN INDICATION
  4. HUMIRA [Suspect]
     Indication: PSORIASIS
  5. MULTI-VITAMIN [Concomitant]
     Indication: PRODUCT USED FOR UNKNOWN INDICATION
     Dosage: DAILY
  6. GABAPENTIN [Concomitant]
     Indication: ARTHRALGIA
     Dosage: AS NEEDED
  7. FLU SHOT [Concomitant]
     Indication: PRODUCT USED FOR UNKNOWN INDICATION
     Dates: start: 20111029, end: 20111029
  8. FISH OIL [Concomitant]
     Indication: BLOOD CHOLESTEROL
  9. HUMIRA [Suspect]
     Indication: PSORIATIC ARTHROPATHY
     Dates: start: 20111001

REACTIONS (6)
  - RASH PAPULAR [None]
  - SCAB [None]
  - ORAL HERPES [None]
  - OROPHARYNGEAL PAIN [None]
  - RASH PUSTULAR [None]
  - PAIN [None]
